FAERS Safety Report 15225212 (Version 5)
Quarter: 2022Q4

REPORT INFORMATION
  Report Type: Other
  Country: JP (occurrence: JP)
  Receive Date: 20180801
  Receipt Date: 20221220
  Transmission Date: 20230112
  Serious: Yes (Hospitalization, Other)
  Sender: FDA-Public Use
  Company Number: JP-CHUGAI-A2018033360ROCHE

PATIENT
  Age: 22 Year
  Sex: Male
  Weight: 59 kg

DRUGS (47)
  1. MYCOPHENOLATE MOFETIL [Suspect]
     Active Substance: MYCOPHENOLATE MOFETIL
     Indication: Prophylaxis against transplant rejection
     Route: 048
     Dates: start: 20171001, end: 20171005
  2. MYCOPHENOLATE MOFETIL [Suspect]
     Active Substance: MYCOPHENOLATE MOFETIL
     Route: 048
     Dates: start: 20171007, end: 20171102
  3. MYCOPHENOLATE MOFETIL [Suspect]
     Active Substance: MYCOPHENOLATE MOFETIL
     Dosage: DOSE INTERVAL UNCERTAINTY
     Route: 048
     Dates: start: 20171122, end: 20180307
  4. MYCOPHENOLATE MOFETIL [Suspect]
     Active Substance: MYCOPHENOLATE MOFETIL
     Dosage: DOSE INTERVAL UNCERTAINTY
     Route: 048
     Dates: start: 20180308, end: 20180323
  5. RITUXIMAB [Suspect]
     Active Substance: RITUXIMAB
     Indication: Prophylaxis against transplant rejection
     Dosage: DATE OF RECENT DOSE: 04/SEP/2017
     Route: 041
     Dates: start: 20170904
  6. TACROLIMUS [Suspect]
     Active Substance: TACROLIMUS
     Indication: Prophylaxis against transplant rejection
     Route: 048
     Dates: start: 20171001, end: 20171005
  7. TACROLIMUS [Suspect]
     Active Substance: TACROLIMUS
     Dosage: 12.4-20.8 NG/ML,
     Route: 042
     Dates: start: 20171006, end: 20171012
  8. TACROLIMUS [Suspect]
     Active Substance: TACROLIMUS
     Dosage: 9.3-22.2 NG/ML
     Route: 048
     Dates: start: 20171012, end: 20171030
  9. TACROLIMUS [Suspect]
     Active Substance: TACROLIMUS
     Dosage: 4.7-7.7 NG/ML
     Route: 048
     Dates: start: 20171031, end: 20180323
  10. TACROLIMUS [Suspect]
     Active Substance: TACROLIMUS
     Dosage: 3.1-6.4 NG/ML
     Route: 048
     Dates: start: 20180324, end: 20181226
  11. TACROLIMUS [Suspect]
     Active Substance: TACROLIMUS
     Dosage: 3.1-6.4 NG/ML
     Route: 048
     Dates: start: 20181227
  12. METHYLPREDNISOLONE SODIUM SUCCINATE [Suspect]
     Active Substance: METHYLPREDNISOLONE SODIUM SUCCINATE
     Indication: Liver transplant
     Dosage: DOSE INTERVAL UNCERTAINTY
     Route: 042
     Dates: start: 20171007, end: 20171012
  13. METHYLPREDNISOLONE SODIUM SUCCINATE [Suspect]
     Active Substance: METHYLPREDNISOLONE SODIUM SUCCINATE
     Dosage: DOSE INTERVAL UNCERTAINTY
     Route: 042
     Dates: start: 20171014, end: 20171015
  14. METHYLPREDNISOLONE SODIUM SUCCINATE [Suspect]
     Active Substance: METHYLPREDNISOLONE SODIUM SUCCINATE
     Dosage: DOSE INTERVAL UNCERTAINTY
     Route: 042
     Dates: start: 20171016, end: 20171016
  15. METHYLPREDNISOLONE SODIUM SUCCINATE [Suspect]
     Active Substance: METHYLPREDNISOLONE SODIUM SUCCINATE
     Dosage: DOSE INTERVAL UNCERTAINTY
     Route: 042
     Dates: start: 20171017, end: 20171017
  16. METHYLPREDNISOLONE SODIUM SUCCINATE [Suspect]
     Active Substance: METHYLPREDNISOLONE SODIUM SUCCINATE
     Dosage: DOSE INTERVAL UNCERTAINTY
     Route: 042
     Dates: start: 20171024, end: 20171025
  17. METHYLPREDNISOLONE SODIUM SUCCINATE [Suspect]
     Active Substance: METHYLPREDNISOLONE SODIUM SUCCINATE
     Dosage: DOSE INTERVAL UNCERTAINTY
     Route: 042
     Dates: start: 20171026, end: 20171027
  18. METHYLPREDNISOLONE SODIUM SUCCINATE [Suspect]
     Active Substance: METHYLPREDNISOLONE SODIUM SUCCINATE
     Dosage: DOSE INTERVAL UNCERTAINTY
     Route: 042
     Dates: start: 20171028, end: 20171029
  19. METHYLPREDNISOLONE SODIUM SUCCINATE [Suspect]
     Active Substance: METHYLPREDNISOLONE SODIUM SUCCINATE
     Dosage: DOSE INTERVAL UNCERTAINTY
     Route: 042
     Dates: start: 20171125, end: 20171127
  20. SOLU-CORTEF [Suspect]
     Active Substance: HYDROCORTISONE SODIUM SUCCINATE
     Indication: Liver transplant
     Dosage: DOSE INTERVAL UNCERTAINTY
     Route: 042
     Dates: start: 20171013, end: 20171013
  21. SOLU-CORTEF [Suspect]
     Active Substance: HYDROCORTISONE SODIUM SUCCINATE
     Dosage: DOSE INTERVAL UNCERTAINTY
     Route: 042
     Dates: start: 20171023, end: 20171023
  22. PREDNISOLONE [Suspect]
     Active Substance: PREDNISOLONE
     Indication: Liver transplant
     Dosage: DOSE INTERVAL UNCERTAINTY
     Route: 048
     Dates: start: 20171013, end: 20171102
  23. PREDNISOLONE [Suspect]
     Active Substance: PREDNISOLONE
     Dosage: DOSE INTERVAL UNCERTAINTY
     Route: 048
     Dates: start: 20171103
  24. CERTICAN [Suspect]
     Active Substance: EVEROLIMUS
     Indication: Prophylaxis against transplant rejection
     Dosage: DOSE INTERVAL UNCERTAINTY
     Route: 048
     Dates: start: 20171030, end: 20171110
  25. CERTICAN [Suspect]
     Active Substance: EVEROLIMUS
     Dosage: DOSE INTERVAL UNCERTAINTY
     Route: 048
     Dates: start: 20171111, end: 20171114
  26. CERTICAN [Suspect]
     Active Substance: EVEROLIMUS
     Dosage: DOSE INTERVAL UNCERTAINTY
     Route: 048
     Dates: start: 20171115, end: 20171119
  27. CERTICAN [Suspect]
     Active Substance: EVEROLIMUS
     Dosage: DOSE INTERVAL UNCERTAINTY
     Route: 048
     Dates: start: 20171120, end: 20171121
  28. CERTICAN [Suspect]
     Active Substance: EVEROLIMUS
     Dosage: DOSE INTERVAL UNCERTAINTY
     Route: 048
     Dates: start: 20171122, end: 20171125
  29. CERTICAN [Suspect]
     Active Substance: EVEROLIMUS
     Dosage: DOSE INTERVAL UNCERTAINTY
     Route: 048
     Dates: start: 20171126, end: 20171128
  30. CERTICAN [Suspect]
     Active Substance: EVEROLIMUS
     Dosage: DOSE INTERVAL UNCERTAINTY
     Route: 048
     Dates: start: 20171129, end: 20171225
  31. CERTICAN [Suspect]
     Active Substance: EVEROLIMUS
     Dosage: DOSE INTERVAL UNCERTAINTY
     Route: 048
     Dates: start: 20171226, end: 20180127
  32. CERTICAN [Suspect]
     Active Substance: EVEROLIMUS
     Dosage: DOSE INTERVAL UNCERTAINTY
     Route: 048
     Dates: start: 20180128
  33. CERTICAN [Suspect]
     Active Substance: EVEROLIMUS
     Dosage: DOSE INTERVAL UNCERTAINTY
     Route: 048
     Dates: start: 20180201
  34. CERTICAN [Suspect]
     Active Substance: EVEROLIMUS
     Route: 048
  35. PENTASA [Concomitant]
     Active Substance: MESALAMINE
     Indication: Colitis ulcerative
     Dosage: DOSAGE IS UNCERTAIN.
     Route: 048
  36. PENTASA [Concomitant]
     Active Substance: MESALAMINE
     Indication: Cholangitis sclerosing
     Dosage: DOSE INTERVAL UNCERTAINTY
     Route: 054
  37. URSODIOL [Concomitant]
     Active Substance: URSODIOL
     Indication: Cholangitis sclerosing
     Dosage: DOSE INTERVAL UNCERTAINTY
     Route: 048
  38. CLAFORAN [Concomitant]
     Active Substance: CEFOTAXIME SODIUM
     Indication: Infection prophylaxis
     Route: 042
     Dates: start: 20171006, end: 20171010
  39. AMPICILLIN [Concomitant]
     Active Substance: AMPICILLIN
     Indication: Infection prophylaxis
     Dosage: DOSE INTERVAL UNCERTAINTY
     Route: 042
     Dates: start: 20171006, end: 20171009
  40. SULFAMETHOXAZOLE\TRIMETHOPRIM [Concomitant]
     Active Substance: SULFAMETHOXAZOLE\TRIMETHOPRIM
     Indication: Infection prophylaxis
     Dosage: DOSE INTERVAL UNCERTAINTY
     Route: 048
     Dates: start: 20171013
  41. VALACYCLOVIR HYDROCHLORIDE [Concomitant]
     Active Substance: VALACYCLOVIR HYDROCHLORIDE
     Indication: Infection prophylaxis
     Dosage: DOSE INTERVAL UNCERTAINTY
     Route: 048
     Dates: start: 20171013
  42. CEFMETAZOLE SODIUM [Concomitant]
     Active Substance: CEFMETAZOLE SODIUM
     Indication: Infection prophylaxis
     Dosage: DOSE INTERVAL UNCERTAINTY
     Route: 042
     Dates: start: 20171107, end: 20171109
  43. VALGANCICLOVIR [Concomitant]
     Active Substance: VALGANCICLOVIR
     Indication: Infection prophylaxis
     Dosage: DOSE INTERVAL UNCERTAINTY
     Route: 048
     Dates: start: 20171117, end: 20171120
  44. CEFOPERAZONE SODIUM\SULBACTAM SODIUM [Concomitant]
     Active Substance: CEFOPERAZONE SODIUM\SULBACTAM SODIUM
     Indication: Infection prophylaxis
     Dosage: DOSE INTERVAL UNCERTAINTY
     Route: 042
     Dates: start: 20171121, end: 20171124
  45. WARFARIN [Concomitant]
     Active Substance: WARFARIN
     Indication: Colitis ulcerative
     Dosage: DOSE INTERVAL UNCERTAINTY
     Route: 048
     Dates: start: 20171024
  46. GANCICLOVIR [Concomitant]
     Active Substance: GANCICLOVIR
     Indication: Infection prophylaxis
     Route: 041
     Dates: start: 20171031, end: 20171116
  47. MESALAMINE [Concomitant]
     Active Substance: MESALAMINE
     Indication: Colitis ulcerative

REACTIONS (13)
  - Abdominal infection [Recovering/Resolving]
  - Peritonitis [Recovering/Resolving]
  - Suture rupture [Recovering/Resolving]
  - Bacteraemia [Recovering/Resolving]
  - Cytomegalovirus infection [Recovered/Resolved]
  - Pseudomembranous colitis [Recovered/Resolved]
  - Liver transplant rejection [Recovered/Resolved]
  - Gastrointestinal anastomotic leak [Recovering/Resolving]
  - Post procedural bile leak [Recovering/Resolving]
  - Hepatic vein stenosis [Recovering/Resolving]
  - Influenza [Recovering/Resolving]
  - Peritonitis bacterial [Recovering/Resolving]
  - Liver transplant rejection [Recovering/Resolving]

NARRATIVE: CASE EVENT DATE: 20171010
